FAERS Safety Report 9247868 (Version 1)
Quarter: 2013Q2

REPORT INFORMATION
  Report Type: Spontaneous
  Country: US (occurrence: None)
  Receive Date: 20130422
  Receipt Date: 20130422
  Transmission Date: 20140414
  Serious: No
  Sender: FDA-Public Use
  Company Number: None

PATIENT
  Age: 59 Year
  Sex: Female

DRUGS (1)
  1. AVASTIN [Suspect]
     Dosage: 100 MG/4ML  IV  FREQUENCY: INFUSE 553MG INTRAVENOUSLY EVERY 2 WEEKS
     Route: 042

REACTIONS (3)
  - Abdominal pain [None]
  - Decreased appetite [None]
  - Gastrointestinal disorder [None]
